FAERS Safety Report 9897732 (Version 1)
Quarter: 2014Q1

REPORT INFORMATION
  Report Type: Report from Study
  Country: FR (occurrence: FR)
  Receive Date: 20140214
  Receipt Date: 20140214
  Transmission Date: 20141002
  Serious: Yes (Other)
  Sender: FDA-Public Use
  Company Number: FR-CELGENEUS-056-C4047-14021420

PATIENT
  Age: 48 Year
  Sex: Male
  Weight: 65 kg

DRUGS (7)
  1. CC-4047 [Suspect]
     Indication: PLASMA CELL MYELOMA
     Dosage: 4 MILLIGRAM
     Route: 048
     Dates: end: 20130710
  2. DEXAMETHASONE [Concomitant]
     Indication: PRODUCT USED FOR UNKNOWN INDICATION
     Dosage: 1 TABLET
     Route: 065
  3. BACTRIM [Concomitant]
     Indication: PROPHYLAXIS
     Route: 065
  4. LEDERFOLINE [Concomitant]
     Indication: PROPHYLAXIS
     Route: 065
  5. ZELITREX [Concomitant]
     Indication: PROPHYLAXIS
     Route: 065
  6. ORACILLINE [Concomitant]
     Indication: PROPHYLAXIS
     Route: 065
  7. ASPEGIC [Concomitant]
     Indication: PROPHYLAXIS
     Dosage: 100 MILLIGRAM
     Route: 065

REACTIONS (3)
  - Deafness [Not Recovered/Not Resolved]
  - Haemoglobin decreased [Unknown]
  - Neutrophil count decreased [Unknown]
